FAERS Safety Report 21337014 (Version 1)
Quarter: 2022Q3

REPORT INFORMATION
  Report Type: Spontaneous
  Country: US (occurrence: None)
  Receive Date: 20220914
  Receipt Date: 20220914
  Transmission Date: 20221026
  Serious: Yes (Hospitalization)
  Sender: FDA-Public Use
  Company Number: None

PATIENT
  Age: 10 Year
  Sex: Male
  Weight: 42.17 kg

DRUGS (4)
  1. FLUOXETINE [Suspect]
     Active Substance: FLUOXETINE HYDROCHLORIDE
     Indication: Affective disorder
     Dosage: FREQUENCY : DAILY;?
     Route: 048
     Dates: end: 20220520
  2. hydroxyzine pamoate 50mg by mouth daily at bedtime for agitation [Concomitant]
  3. melatonin 5 mg - 2 tablets by mouth daily at bedtime for sleep [Concomitant]
  4. methylphenidate ER 54mg - 1 tablet by mouth daily [Concomitant]

REACTIONS (4)
  - Abnormal behaviour [None]
  - Aggression [None]
  - Aggression [None]
  - Therapy cessation [None]

NARRATIVE: CASE EVENT DATE: 20220515
